FAERS Safety Report 13070688 (Version 4)
Quarter: 2025Q4

REPORT INFORMATION
  Report Type: Spontaneous
  Country: EU (occurrence: EU)
  Receive Date: 20161229
  Receipt Date: 20251215
  Transmission Date: 20260117
  Serious: Yes (Death, Life-Threatening, Hospitalization)
  Sender: INCYTE
  Company Number: EU-002147023-PHHO2016ES018526

PATIENT
  Age: 58 Year
  Weight: 70 kg

DRUGS (6)
  1. RUXOLITINIB [Suspect]
     Active Substance: RUXOLITINIB
     Indication: Myelofibrosis
     Dosage: 20 MG, Q12H
     Route: 061
  2. DEFERASIROX [Suspect]
     Active Substance: DEFERASIROX
     Indication: Product used for unknown indication
     Dosage: 500 MG, QOD
     Route: 061
  3. ANAGRELIDE [Suspect]
     Active Substance: ANAGRELIDE
     Indication: Product used for unknown indication
     Dosage: 0.5 MG, QD
     Route: 061
  4. FOLIC ACID [Suspect]
     Active Substance: FOLIC ACID
     Indication: Product used for unknown indication
     Dosage: 5 MG, QD
     Route: 061
  5. THALIDOMIDE [Suspect]
     Active Substance: THALIDOMIDE
     Indication: Product used for unknown indication
     Dosage: 50 MG, BID (48 HOUR)
     Route: 061
  6. EPOETIN BETA [Suspect]
     Active Substance: ERYTHROPOIETIN
     Indication: Product used for unknown indication
     Dosage: 30000 ENZYME UNIT, BIW

REACTIONS (5)
  - Septic shock [Fatal]
  - Bone marrow failure [Fatal]
  - Intestinal perforation [Fatal]
  - Acute myeloid leukaemia [Not Recovered/Not Resolved]
  - Acute abdomen [Unknown]
